FAERS Safety Report 10503020 (Version 2)
Quarter: 2014Q4

REPORT INFORMATION
  Report Type: Spontaneous
  Country: US (occurrence: US)
  Receive Date: 20141007
  Receipt Date: 20141022
  Transmission Date: 20150528
  Serious: Yes (Other)
  Sender: FDA-Public Use
  Company Number: CHPA2014US013013

PATIENT
  Sex: Female

DRUGS (4)
  1. EVISTA [Concomitant]
     Active Substance: RALOXIFENE HYDROCHLORIDE
     Indication: OSTEOPOROSIS PROPHYLAXIS
     Dosage: 60 MG, QD
  2. PREVACID [Suspect]
     Active Substance: LANSOPRAZOLE
     Indication: GASTROOESOPHAGEAL REFLUX DISEASE
     Dosage: 2 DF, QD
     Route: 048
     Dates: start: 201409
  3. PREVACID [Suspect]
     Active Substance: LANSOPRAZOLE
     Indication: INCORRECT DOSE ADMINISTERED
     Dosage: 1 DF, QD
     Route: 048
  4. PREVACID [Suspect]
     Active Substance: LANSOPRAZOLE
     Indication: OFF LABEL USE
     Dosage: 1 TO 2 CAPSULES DAILY
     Route: 048

REACTIONS (9)
  - Heart rate irregular [Not Recovered/Not Resolved]
  - Urticaria [Recovering/Resolving]
  - Therapeutic response unexpected [Unknown]
  - Oral pain [Not Recovered/Not Resolved]
  - Mouth ulceration [Not Recovered/Not Resolved]
  - Incorrect drug administration duration [Unknown]
  - Blood cholesterol increased [Not Recovered/Not Resolved]
  - Dry mouth [Not Recovered/Not Resolved]
  - Incorrect dose administered [Unknown]

NARRATIVE: CASE EVENT DATE: 20140922
